FAERS Safety Report 5933585 (Version 4)
Quarter: 2014Q1

REPORT INFORMATION
  Report Type: Spontaneous
  Country: US (occurrence: US)
  Receive Date: 20051201
  Receipt Date: 20140211
  Transmission Date: 20141002
  Serious: Yes (Death)
  Sender: FDA-Public Use
  Company Number: US-GLAXOSMITHKLINE-A0583938A

PATIENT
  Age: 10 Year
  Sex: Male
  Weight: 40.9 kg

DRUGS (7)
  1. ADVAIR [Suspect]
     Indication: ASTHMA
     Dosage: 1PUFF TWICE PER DAY
     Route: 055
     Dates: start: 20030505
  2. SEREVENT [Suspect]
     Indication: PRODUCT USED FOR UNKNOWN INDICATION
     Route: 055
  3. CONCERTA [Concomitant]
     Indication: ATTENTION DEFICIT/HYPERACTIVITY DISORDER
     Dosage: 36MG PER DAY
     Route: 048
  4. ELIDEL [Concomitant]
     Indication: ECZEMA
     Route: 061
  5. ALBUTEROL [Concomitant]
     Indication: ASTHMA
     Route: 055
  6. CLARINEX [Concomitant]
     Dosage: 1TAB PER DAY
     Route: 048
  7. AUGMENTIN [Concomitant]
     Indication: TOOTH ABSCESS
     Route: 048

REACTIONS (2)
  - Asthma [Fatal]
  - Respiratory arrest [Unknown]
